FAERS Safety Report 19592847 (Version 2)
Quarter: 2021Q3

REPORT INFORMATION
  Report Type: Spontaneous
  Country: US (occurrence: US)
  Receive Date: 20210722
  Receipt Date: 20210818
  Transmission Date: 20211014
  Serious: Yes (Hospitalization, Other)
  Sender: FDA-Public Use
  Company Number: US-KARYOPHARM-2021KPT000774

PATIENT

DRUGS (9)
  1. ASPIRIN 81 [Concomitant]
     Active Substance: ASPIRIN
  2. ZOFRAN [Concomitant]
     Active Substance: ONDANSETRON HYDROCHLORIDE
     Dosage: 8 MG
  3. MIRALAX [Concomitant]
     Active Substance: POLYETHYLENE GLYCOL 3350
  4. GRANIX [Concomitant]
     Active Substance: TBO-FILGRASTIM
  5. OMEPRAZOLE. [Concomitant]
     Active Substance: OMEPRAZOLE
     Dosage: 20 MG
  6. IMODIUM A?D [Concomitant]
     Active Substance: LOPERAMIDE HYDROCHLORIDE
  7. XPOVIO [Suspect]
     Active Substance: SELINEXOR
     Dosage: 20 MG, 2X/WEEK
     Route: 048
     Dates: start: 202106
  8. XPOVIO [Suspect]
     Active Substance: SELINEXOR
     Indication: DIFFUSE LARGE B-CELL LYMPHOMA
     Dosage: 60 MG, 2X/WEEK
     Route: 048
     Dates: start: 20210524, end: 202106
  9. SENNA AND DOCUSATE SODIUM [Concomitant]
     Active Substance: DOCUSATE SODIUM\SENNOSIDES

REACTIONS (8)
  - COVID-19 [Unknown]
  - Nausea [Not Recovered/Not Resolved]
  - Flatulence [Unknown]
  - Pulmonary oedema [Unknown]
  - Oedema peripheral [Unknown]
  - Gastritis [Unknown]
  - Abdominal distension [Unknown]
  - Vomiting [Unknown]

NARRATIVE: CASE EVENT DATE: 202106
